FAERS Safety Report 6696942-7 (Version None)
Quarter: 2010Q2

REPORT INFORMATION
  Report Type: 
  Country: None (occurrence: None)
  Receive Date: 20100426
  Receipt Date: 20100414
  Transmission Date: 20101027
  Serious: Yes (Other)
  Sender: FDA-Public Use
  Company Number: PHHY2010SI24762

PATIENT
  Age: 86 Year
  Sex: Male

DRUGS (6)
  1. RASILEZ [Suspect]
     Dosage: 300 MG DAILY
  2. TERTENSIF - SLOW RELEASE [Concomitant]
     Dosage: 1.5 MG DAILY
  3. NOVONORM [Concomitant]
     Dosage: 6 MG
  4. METFORMIN HCL [Concomitant]
     Dosage: 500 MG
  5. SERETIDE [Concomitant]
     Dosage: 50/500, 2 X 1 INHALATION
  6. SINGULAIR [Concomitant]
     Dosage: 10 MG

REACTIONS (1)
  - BLOOD GLUCOSE INCREASED [None]
